FAERS Safety Report 7260650-4 (Version None)
Quarter: 2011Q1

REPORT INFORMATION
  Report Type: 
  Country: None (occurrence: None)
  Receive Date: 20110130
  Receipt Date: 20101217
  Transmission Date: 20110831
  Serious: No
  Sender: FDA-Public Use
  Company Number: US-ABBOTT-10P-163-0687098-00

PATIENT
  Age: 48 Year
  Sex: Female
  Weight: 69.916 kg

DRUGS (9)
  1. ESTRADIOL [Concomitant]
     Indication: HOT FLUSH
  2. CELEBREX [Concomitant]
     Indication: INFLAMMATION
  3. HUMIRA [Suspect]
     Indication: RHEUMATOID ARTHRITIS
     Route: 058
     Dates: start: 20101109, end: 20101109
  4. CITALOPRAM [Concomitant]
     Indication: DEPRESSION
  5. DOXEPIN HCL [Concomitant]
     Indication: INSOMNIA
  6. CELEBREX [Concomitant]
     Indication: RHEUMATOID ARTHRITIS
  7. PREDNISONE [Concomitant]
     Route: 048
     Dates: start: 20101101
  8. PREDNISONE [Concomitant]
     Indication: RHEUMATOID ARTHRITIS
     Route: 048
     Dates: end: 20101101
  9. DOXEPIN HCL [Concomitant]
     Indication: DEPRESSION

REACTIONS (7)
  - INJECTION SITE WARMTH [None]
  - HYPERSENSITIVITY [None]
  - PRURITUS [None]
  - INJECTION SITE NODULE [None]
  - INJECTION SITE ERYTHEMA [None]
  - URTICARIA [None]
  - INJECTION SITE SWELLING [None]
